FAERS Safety Report 5193371-2 (Version None)
Quarter: 2006Q4

REPORT INFORMATION
  Report Type: 
  Country: None (occurrence: None)
  Receive Date: 20061228
  Receipt Date: 20061023
  Transmission Date: 20070319
  Serious: No
  Sender: FDA-Public Use
  Company Number: US-GLAXOSMITHKLINE-A0624550A

PATIENT
  Age: 62 Year
  Sex: Male

DRUGS (4)
  1. AVODART [Suspect]
     Indication: BENIGN PROSTATIC HYPERPLASIA
     Dosage: .5MGK PER DAY
     Route: 048
     Dates: start: 20061002
  2. ZOCOR [Concomitant]
  3. DIOVAN [Concomitant]
  4. NORVASC [Concomitant]

REACTIONS (1)
  - SEMEN DISCOLOURATION [None]
